FAERS Safety Report 19418884 (Version 4)
Quarter: 2021Q3

REPORT INFORMATION
  Report Type: Spontaneous
  Country: US (occurrence: US)
  Receive Date: 20210615
  Receipt Date: 20210809
  Transmission Date: 20211014
  Serious: Yes (Other)
  Sender: FDA-Public Use
  Company Number: US-PARATEK PHARMACEUTICALS, INC.-2021PTK00083

PATIENT
  Age: 61 Year
  Sex: Female
  Weight: 63.04 kg

DRUGS (21)
  1. DILTIAZEM CD [Concomitant]
     Active Substance: DILTIAZEM
  2. VITAMIN D3 [Concomitant]
     Active Substance: CHOLECALCIFEROL
  3. TRIAMTERENE AND HYDROCHLOROTHIAZIDE [Concomitant]
     Active Substance: HYDROCHLOROTHIAZIDE\TRIAMTERENE
  4. AMIKACIN SULFATE. [Concomitant]
     Active Substance: AMIKACIN SULFATE
     Dosage: UNK, 1X/DAY
     Route: 042
  5. LEXAPRO [Concomitant]
     Active Substance: ESCITALOPRAM OXALATE
  6. DULERA [Concomitant]
     Active Substance: FORMOTEROL FUMARATE DIHYDRATE\MOMETASONE FUROATE
  7. ZOLPIDEM ER [Concomitant]
     Active Substance: ZOLPIDEM TARTRATE
  8. BUPROPION HYDROCHLORIDE XL [Concomitant]
     Active Substance: BUPROPION HYDROCHLORIDE
  9. GABAPENTIN. [Concomitant]
     Active Substance: GABAPENTIN
  10. NUZYRA [Suspect]
     Active Substance: OMADACYCLINE
     Indication: MYCOBACTERIAL INFECTION
     Dosage: 300 MG, 1X/DAY
     Route: 048
     Dates: start: 20201130
  11. IMIPENEM?CILASTATIN [Concomitant]
     Active Substance: CILASTATIN SODIUM\IMIPENEM
     Dosage: 500 MG, 3X/DAY (EVERY 8 HOURS)
     Route: 042
  12. ELIQUIS [Concomitant]
     Active Substance: APIXABAN
  13. SYNTHROID [Concomitant]
     Active Substance: LEVOTHYROXINE SODIUM
  14. SPIRIVA RESPIMAT [Concomitant]
     Active Substance: TIOTROPIUM BROMIDE
  15. ATORVASTATIN [Concomitant]
     Active Substance: ATORVASTATIN
  16. KLONOPIN [Concomitant]
     Active Substance: CLONAZEPAM
  17. AMMONIUM LACTATE. [Concomitant]
     Active Substance: AMMONIUM LACTATE
  18. PRAVASTATIN. [Concomitant]
     Active Substance: PRAVASTATIN
  19. NEBUSAL [Concomitant]
     Active Substance: SODIUM CHLORIDE
  20. ESTRADIOL. [Concomitant]
     Active Substance: ESTRADIOL
  21. SUPREP BOWEL PREP [Concomitant]
     Active Substance: MAGNESIUM SULFATE\POTASSIUM SULFATE\SODIUM SULFATE
     Dosage: UNK, AS DIRECTED
     Route: 048

REACTIONS (5)
  - Anal skin tags [Unknown]
  - Large intestine polyp [Recovered/Resolved]
  - Diverticulum [Unknown]
  - Gastritis [Recovering/Resolving]
  - Off label use [Not Recovered/Not Resolved]

NARRATIVE: CASE EVENT DATE: 20201130
